FAERS Safety Report 19444766 (Version 1)
Quarter: 2021Q2

REPORT INFORMATION
  Report Type: Spontaneous
  Country: GB (occurrence: GB)
  Receive Date: 20210621
  Receipt Date: 20210621
  Transmission Date: 20210717
  Serious: Yes (Other)
  Sender: FDA-Public Use
  Company Number: GB-MYLANLABS-2021M1036158

PATIENT
  Age: 57 Year
  Sex: Female
  Weight: 71.5 kg

DRUGS (8)
  1. GLICLAZIDE [Concomitant]
     Active Substance: GLICLAZIDE
     Dosage: 160 MILLIGRAM, BID
     Dates: start: 20210126
  2. METFORMIN [Suspect]
     Active Substance: METFORMIN HYDROCHLORIDE
     Indication: TYPE 2 DIABETES MELLITUS
     Dosage: UNK
     Route: 048
  3. FLUCONAZOLE. [Concomitant]
     Active Substance: FLUCONAZOLE
     Dosage: 150 MILLIGRAM, TAKE EVERY 72HRS FOR 3 DOSES THEN ONCE A WEEK
     Dates: start: 20210204
  4. GABAPENTIN. [Concomitant]
     Active Substance: GABAPENTIN
     Dosage: TAKE ONE TABLET ONCE A DAY THEN INCREASE TO ONE TABLET TWICE A DAY ON DAY TWO AND THEN ONE TABLET TH
     Dates: start: 20210408
  5. IBUPROFEN. [Concomitant]
     Active Substance: IBUPROFEN
     Indication: PAIN
     Dosage: 400 MILLIGRAM, TID, WHEN NEEDED
     Dates: start: 20210126
  6. IBUPROFEN. [Concomitant]
     Active Substance: IBUPROFEN
     Dosage: APPLY TO THE AFFECTED AREA(S)
     Dates: start: 20210126
  7. ESOMEPRAZOLE. [Concomitant]
     Active Substance: ESOMEPRAZOLE MAGNESIUM
     Dosage: 20 MILLIGRAM, QD, TAKE EVERY 72HRS FOR 3 DOSES THEN ONCE A WEEK
     Dates: start: 20210217
  8. COCODAMOL [Concomitant]
     Active Substance: ACETAMINOPHEN\CODEINE PHOSPHATE
     Indication: PAIN
     Dosage: UNK, 1?2 WHEN REQUIRED 30MG/500MG
     Dates: start: 20210126

REACTIONS (4)
  - Headache [Recovered/Resolved]
  - Paraesthesia [Recovered/Resolved]
  - Neuropathy peripheral [Recovered/Resolved]
  - Constipation [Unknown]

NARRATIVE: CASE EVENT DATE: 20200930
